FAERS Safety Report 23948539 (Version 1)
Quarter: 2024Q2

REPORT INFORMATION
  Report Type: Spontaneous
  Country: CN (occurrence: CN)
  Receive Date: 20240607
  Receipt Date: 20240607
  Transmission Date: 20240716
  Serious: Yes (Hospitalization)
  Sender: FDA-Public Use
  Company Number: CN-AMGEN-CHNSP2024110676

PATIENT
  Age: 61 Year
  Sex: Male
  Weight: 60 kg

DRUGS (2)
  1. XGEVA [Suspect]
     Active Substance: DENOSUMAB
     Indication: Neoplasm
     Dosage: 120 MILLIGRAM
     Route: 042
     Dates: start: 20240425, end: 20240425
  2. XGEVA [Suspect]
     Active Substance: DENOSUMAB
     Indication: Bone cancer metastatic

REACTIONS (3)
  - Pyrexia [Recovering/Resolving]
  - Pneumonitis [Recovering/Resolving]
  - Platelet count decreased [Recovering/Resolving]

NARRATIVE: CASE EVENT DATE: 20240509
